FAERS Safety Report 21028916 (Version 2)
Quarter: 2023Q1

REPORT INFORMATION
  Report Type: Spontaneous
  Country: FR (occurrence: FR)
  Receive Date: 20220630
  Receipt Date: 20230313
  Transmission Date: 20230418
  Serious: Yes (Life-Threatening, Hospitalization, Other)
  Sender: FDA-Public Use
  Company Number: FR-GRUNENTHAL-2022-105008

PATIENT
  Age: 18 Year
  Sex: Male
  Weight: 63 kg

DRUGS (1)
  1. TRAMADOL [Suspect]
     Active Substance: TRAMADOL
     Indication: Headache
     Dosage: 1 DOSAGE FORM, QUANTITY NOT SPECIFIED
     Route: 065
     Dates: start: 20210531, end: 20210531

REACTIONS (14)
  - Poisoning deliberate [Recovered/Resolved]
  - Pneumonia aspiration [Recovered/Resolved]
  - Multiple organ dysfunction syndrome [Recovered/Resolved]
  - Cardio-respiratory arrest [Recovered/Resolved]
  - Hypoglycaemia [Recovered/Resolved]
  - Cell death [Recovering/Resolving]
  - Renal failure [Recovering/Resolving]
  - Lactic acidosis [Recovering/Resolving]
  - Toxicity to various agents [Recovering/Resolving]
  - Hepatic failure [Recovering/Resolving]
  - Rhabdomyolysis [Recovering/Resolving]
  - Thrombocytopenia [Recovering/Resolving]
  - Intentional product misuse [Recovering/Resolving]
  - Overdose [Recovering/Resolving]

NARRATIVE: CASE EVENT DATE: 20210531
